FAERS Safety Report 5278123-7 (Version None)
Quarter: 2007Q1

REPORT INFORMATION
  Report Type: 
  Country: None (occurrence: None)
  Receive Date: 20061213
  Receipt Date: 20040907
  Transmission Date: 20070707
  Serious: No
  Sender: FDA-Public Use
  Company Number: 2004UW18868

PATIENT

DRUGS (2)
  1. SEROQUEL [Suspect]
     Indication: HALLUCINATION
     Dosage: 500 MG QD PO
     Route: 048
  2. SEROQUEL [Suspect]
     Indication: HALLUCINATION
     Dosage: 400 MG QD PO
     Route: 048

REACTIONS (2)
  - ELECTROCARDIOGRAM QT PROLONGED [None]
  - SYNCOPE [None]
